FAERS Safety Report 5642185-5 (Version None)
Quarter: 2008Q1

REPORT INFORMATION
  Report Type: 
  Country: None (occurrence: None)
  Receive Date: 20080225
  Receipt Date: 20080212
  Transmission Date: 20080703
  Serious: Yes (Death, Life-Threatening, Hospitalization)
  Sender: FDA-Public Use
  Company Number: ATO-04-0226

PATIENT
  Age: 17 Year
  Sex: Female
  Weight: 77 kg

DRUGS (10)
  1. TRISENOX [Suspect]
     Indication: B-CELL LYMPHOMA
     Dosage: DAYS 1-5 X 4 WKS Q6WKS; UNIT DOSE: .2 MG/KG; 0.20 MG/KG; ROUTE; INTRAVENOUS DRIP
     Route: 041
     Dates: start: 20040106, end: 20040126
  2. ALBUTEROL [Concomitant]
  3. GRANISETRON [Concomitant]
  4. ACYCLOVIR [Concomitant]
  5. RANITIDINE [Concomitant]
  6. MORPHINE [Concomitant]
  7. DIPHENHYDRAMINE HCL [Concomitant]
  8. SULFAMETHOXAZOLE AND TRIMETHOPRIM [Concomitant]
  9. BISACODYL [Concomitant]
  10. DEXAMETHASONE TAB [Suspect]

REACTIONS (20)
  - ALANINE AMINOTRANSFERASE INCREASED [None]
  - ASPARTATE AMINOTRANSFERASE INCREASED [None]
  - BLOOD POTASSIUM INCREASED [None]
  - BLOOD URIC ACID INCREASED [None]
  - CARDIAC ARREST [None]
  - CELL DEATH [None]
  - CONSTIPATION [None]
  - DEPRESSED LEVEL OF CONSCIOUSNESS [None]
  - DISEASE PROGRESSION [None]
  - DYSPEPSIA [None]
  - DYSPNOEA [None]
  - FALL [None]
  - HAEMOGLOBIN DECREASED [None]
  - HYPERBILIRUBINAEMIA [None]
  - HYPONATRAEMIA [None]
  - METASTASES TO PANCREAS [None]
  - PANCREATITIS [None]
  - PITTING OEDEMA [None]
  - PLATELET COUNT DECREASED [None]
  - PULMONARY MASS [None]
